FAERS Safety Report 4886544-7 (Version None)
Quarter: 2006Q1

REPORT INFORMATION
  Report Type: 
  Country: None (occurrence: None)
  Receive Date: 20060118
  Receipt Date: 20060105
  Transmission Date: 20060701
  Serious: Yes (Hospitalization)
  Sender: FDA-Public Use
  Company Number: 2006BI000395

PATIENT
  Age: 42 Year
  Sex: Male
  Weight: 97.5234 kg

DRUGS (1)
  1. AVONEX [Suspect]
     Indication: MULTIPLE SCLEROSIS
     Dosage: 30 UG;QW;IM
     Dates: start: 19970101, end: 20030101

REACTIONS (5)
  - BURNING SENSATION [None]
  - DYSSTASIA [None]
  - INTERVERTEBRAL DISC PROTRUSION [None]
  - PAIN [None]
  - PAIN IN EXTREMITY [None]
